FAERS Safety Report 6342580-5 (Version None)
Quarter: 2009Q3

REPORT INFORMATION
  Report Type: 
  Country: None (occurrence: None)
  Receive Date: 20090908
  Receipt Date: 20090827
  Transmission Date: 20100115
  Serious: Yes (Other)
  Sender: FDA-Public Use
  Company Number: GB-JNJFOC-20090803511

PATIENT
  Age: 72 Year

DRUGS (3)
  1. CAELYX [Suspect]
     Indication: BREAST CANCER
     Route: 042
  2. CYCLOPHOSPHAMIDE [Suspect]
     Indication: BREAST CANCER
     Route: 065
  3. TAMOXIFEN CITRATE [Suspect]
     Indication: BREAST CANCER
     Route: 065

REACTIONS (1)
  - ACUTE MYELOID LEUKAEMIA [None]
